FAERS Safety Report 17870680 (Version 1)
Quarter: 2020Q2

REPORT INFORMATION
  Report Type: Report from Study
  Country: None (occurrence: DE)
  Receive Date: 20200608
  Receipt Date: 20200608
  Transmission Date: 20200714
  Serious: Yes (Hospitalization, Disabling, Other)
  Sender: FDA-Public Use
  Company Number: DE-ABBVIE-20K-062-3265462-00

PATIENT
  Sex: Female

DRUGS (20)
  1. NACOM [Concomitant]
     Active Substance: CARBIDOPA\LEVODOPA
     Indication: PARKINSON^S DISEASE
     Dosage: 100/25 MG/D
     Route: 048
  2. CIRCADIN [Concomitant]
     Active Substance: MELATONIN
     Indication: PRODUCT USED FOR UNKNOWN INDICATION
  3. TOPIRAMAT [Concomitant]
     Active Substance: TOPIRAMATE
     Indication: TREMOR
     Route: 048
  4. PRAVASTATIN. [Concomitant]
     Active Substance: PRAVASTATIN
     Indication: HYPERCHOLESTEROLAEMIA
     Route: 048
  5. BIOTIN [Concomitant]
     Active Substance: BIOTIN
     Indication: VITAMIN SUPPLEMENTATION
     Route: 048
  6. DUODOPA [Suspect]
     Active Substance: CARBIDOPA\LEVODOPA
     Dosage: MD 8 ML / CRD 2.8 ML/H / ED 1 ML
     Route: 050
     Dates: start: 2020, end: 2020
  7. SIMVASTATIN. [Concomitant]
     Active Substance: SIMVASTATIN
     Indication: PRODUCT USED FOR UNKNOWN INDICATION
  8. PANTOPRAZOL [Concomitant]
     Active Substance: PANTOPRAZOLE SODIUM
     Indication: GASTRITIS
     Route: 048
  9. ELIQUIS [Concomitant]
     Active Substance: APIXABAN
     Indication: PRODUCT USED FOR UNKNOWN INDICATION
  10. AMLODIPIN [Concomitant]
     Active Substance: AMLODIPINE BESYLATE
     Indication: PRODUCT USED FOR UNKNOWN INDICATION
  11. MELATONIN [Concomitant]
     Active Substance: MELATONIN
     Indication: SLEEP DISORDER
     Route: 048
  12. VIGANTOL [Concomitant]
     Indication: PRODUCT USED FOR UNKNOWN INDICATION
  13. METOPROLOL. [Concomitant]
     Active Substance: METOPROLOL
     Indication: ARRHYTHMIA
     Route: 048
  14. DUODOPA [Suspect]
     Active Substance: CARBIDOPA\LEVODOPA
     Indication: PARKINSON^S DISEASE
     Dosage: MD 8 ML CRD 3.1 ML/H ED 1 ML
     Route: 050
     Dates: start: 20180427, end: 2020
  15. DUODOPA [Suspect]
     Active Substance: CARBIDOPA\LEVODOPA
     Dosage: MD 8.0 ML; CRD 3.0 ML/H; ED 1.0 ML
     Route: 050
     Dates: start: 2020, end: 20200519
  16. PRAMIPEXOL [Concomitant]
     Active Substance: PRAMIPEXOLE
     Route: 048
  17. COLECALCIFEROL [Concomitant]
     Active Substance: CHOLECALCIFEROL
     Indication: HYPOVITAMINOSIS
     Route: 048
  18. DUODOPA [Suspect]
     Active Substance: CARBIDOPA\LEVODOPA
     Dosage: MD 8.0 ML; CRD 3.2 ML/H; ED 1.0 ML
     Route: 050
     Dates: start: 20200519
  19. PRAMIPEXOL [Concomitant]
     Active Substance: PRAMIPEXOLE
     Indication: PARKINSON^S DISEASE
  20. FOLIC ACID. [Concomitant]
     Active Substance: FOLIC ACID
     Indication: PRODUCT USED FOR UNKNOWN INDICATION

REACTIONS (5)
  - Hypokinesia [Recovering/Resolving]
  - Transient ischaemic attack [Unknown]
  - Stoma site inflammation [Not Recovered/Not Resolved]
  - Hyperkinesia [Recovered/Resolved]
  - Hyperkinesia [Not Recovered/Not Resolved]

NARRATIVE: CASE EVENT DATE: 2019
